FAERS Safety Report 12557264 (Version 2)
Quarter: 2016Q3

REPORT INFORMATION
  Report Type: Spontaneous
  Country: US (occurrence: US)
  Receive Date: 20160714
  Receipt Date: 20160802
  Transmission Date: 20161109
  Serious: No
  Sender: FDA-Public Use
  Company Number: US-PFIZER INC-2790461

PATIENT
  Sex: Male

DRUGS (2)
  1. CEFTRIAXONE SODIUM. [Suspect]
     Active Substance: CEFTRIAXONE SODIUM
     Indication: PRODUCT USED FOR UNKNOWN INDICATION
     Dosage: 1 G, DAILY
     Route: 042
  2. WATER BACTERIOSTATIC [Suspect]
     Active Substance: WATER
     Indication: MEDICATION DILUTION
     Dosage: NOT REPORTED

REACTIONS (4)
  - Drug dose omission [Unknown]
  - Product physical consistency issue [Unknown]
  - Product reconstitution issue [Unknown]
  - Product colour issue [Unknown]
